FAERS Safety Report 6676944-7 (Version None)
Quarter: 2010Q2

REPORT INFORMATION
  Report Type: 
  Country: None (occurrence: None)
  Receive Date: 20100412
  Receipt Date: 20100406
  Transmission Date: 20101027
  Serious: Yes (Death, Hospitalization)
  Sender: FDA-Public Use
  Company Number: DE-CELGENEUS-062-21880-10010651

PATIENT
  Sex: Male
  Weight: 64 kg

DRUGS (8)
  1. REVLIMID [Suspect]
     Indication: PLASMACYTOMA
     Route: 048
     Dates: start: 20090201, end: 20090731
  2. REVLIMID [Suspect]
     Route: 048
     Dates: start: 20080901, end: 20080901
  3. DEXAMETHASONE [Concomitant]
     Indication: PLASMACYTOMA
     Route: 048
     Dates: start: 20090201, end: 20090701
  4. DEXAMETHASONE [Concomitant]
     Route: 048
     Dates: start: 20080901, end: 20080901
  5. ZOMETA [Concomitant]
     Indication: PLASMACYTOMA
     Route: 051
     Dates: start: 20080801, end: 20091001
  6. ACETYLSALICYLIC ACID [Concomitant]
     Indication: PLASMACYTOMA
     Route: 048
     Dates: start: 20090201, end: 20090701
  7. ACETYLSALICYLIC ACID [Concomitant]
     Route: 048
     Dates: start: 20080901, end: 20080901
  8. HYDROMORPHONE HCL [Concomitant]
     Indication: PAIN
     Route: 065
     Dates: start: 20061001, end: 20100101

REACTIONS (2)
  - DISEASE PROGRESSION [None]
  - HYPERVISCOSITY SYNDROME [None]
